FAERS Safety Report 18044587 (Version 1)
Quarter: 2020Q3

REPORT INFORMATION
  Report Type: Spontaneous
  Country: US (occurrence: US)
  Receive Date: 20200720
  Receipt Date: 20200720
  Transmission Date: 20201103
  Serious: Yes (Other)
  Sender: FDA-Public Use
  Company Number: None

PATIENT
  Age: 36 Year
  Sex: Female

DRUGS (1)
  1. MOTEGRITY [Suspect]
     Active Substance: PRUCALOPRIDE SUCCINATE
     Route: 048
     Dates: start: 20200708, end: 20200708

REACTIONS (7)
  - Dysphagia [None]
  - Dyspnoea [None]
  - Asthenia [None]
  - Fatigue [None]
  - Dizziness [None]
  - Nightmare [None]
  - Somnolence [None]

NARRATIVE: CASE EVENT DATE: 20200708
